FAERS Safety Report 13416040 (Version 14)
Quarter: 2018Q1

REPORT INFORMATION
  Report Type: Spontaneous
  Country: JP (occurrence: JP)
  Receive Date: 20170407
  Receipt Date: 20180208
  Transmission Date: 20180508
  Serious: Yes (Other)
  Sender: FDA-Public Use
  Company Number: JP-GILEAD-2017-0263458

PATIENT
  Age: 60 Year
  Sex: Female

DRUGS (23)
  1. HARVONI [Suspect]
     Active Substance: LEDIPASVIR\SOFOSBUVIR
     Dosage: 1 DF, BID
     Route: 048
     Dates: start: 201706
  2. HARVONI [Suspect]
     Active Substance: LEDIPASVIR\SOFOSBUVIR
     Dosage: UNK
     Route: 048
     Dates: start: 20170410
  3. SUPACAL [Concomitant]
     Route: 048
  4. GOREISAN                           /08015901/ [Concomitant]
     Active Substance: HERBALS
  5. YOKUKANSAN [Concomitant]
     Active Substance: HERBALS
  6. LAXOBERON [Concomitant]
     Active Substance: SODIUM PICOSULFATE
  7. PREDNISOLONE. [Concomitant]
     Active Substance: PREDNISOLONE
     Route: 048
  8. HARVONI [Suspect]
     Active Substance: LEDIPASVIR\SOFOSBUVIR
     Dosage: 1 DF, UNK
     Route: 048
     Dates: start: 20170313, end: 20170328
  9. HARVONI [Suspect]
     Active Substance: LEDIPASVIR\SOFOSBUVIR
     Dosage: UNK
     Route: 048
     Dates: start: 20170403, end: 20170407
  10. HARVONI [Suspect]
     Active Substance: LEDIPASVIR\SOFOSBUVIR
     Dosage: UNK
     Route: 048
     Dates: start: 20170605, end: 201706
  11. HARVONI [Suspect]
     Active Substance: LEDIPASVIR\SOFOSBUVIR
     Dosage: UNK
     Route: 048
     Dates: start: 20170628
  12. TENORMIN [Concomitant]
     Active Substance: ATENOLOL
  13. HARVONI [Suspect]
     Active Substance: LEDIPASVIR\SOFOSBUVIR
     Dosage: 1DF, EVERY OTHER DAY
     Route: 048
     Dates: start: 201707, end: 201707
  14. HARVONI [Suspect]
     Active Substance: LEDIPASVIR\SOFOSBUVIR
     Dosage: UNK
     Route: 048
     Dates: start: 20170626, end: 20170626
  15. EURODIN                            /00425901/ [Concomitant]
     Active Substance: ESTAZOLAM
     Route: 048
  16. HARVONI [Suspect]
     Active Substance: LEDIPASVIR\SOFOSBUVIR
     Dosage: 3 DF, UNK
     Route: 048
  17. PURSENNIDE                         /00571901/ [Concomitant]
  18. HARVONI [Suspect]
     Active Substance: LEDIPASVIR\SOFOSBUVIR
     Dosage: 1 DF, QD
     Route: 048
     Dates: start: 20170721, end: 20170724
  19. URSO [Concomitant]
     Active Substance: URSODIOL
     Route: 048
  20. HARVONI [Suspect]
     Active Substance: LEDIPASVIR\SOFOSBUVIR
     Indication: HEPATITIS C
     Dosage: 1 DF, BID
     Route: 048
     Dates: end: 20170720
  21. HARVONI [Suspect]
     Active Substance: LEDIPASVIR\SOFOSBUVIR
     Dosage: UNK
     Route: 048
     Dates: start: 20170620
  22. ALDACTONE [Concomitant]
     Active Substance: SPIRONOLACTONE
     Dosage: UNK
     Route: 048
  23. VASOLAN                            /00014302/ [Concomitant]
     Active Substance: VERAPAMIL HYDROCHLORIDE

REACTIONS (101)
  - Headache [Recovered/Resolved]
  - Blood pressure fluctuation [Unknown]
  - Cough [Unknown]
  - Jaundice [Not Recovered/Not Resolved]
  - Sputum retention [Unknown]
  - Breast enlargement [Not Recovered/Not Resolved]
  - Pigmentation disorder [Unknown]
  - Dental prosthesis placement [Unknown]
  - Fat tissue increased [Unknown]
  - Gait disturbance [Unknown]
  - Rhinorrhoea [Unknown]
  - Malaise [Unknown]
  - Palpitations [Not Recovered/Not Resolved]
  - Flank pain [Recovered/Resolved]
  - Irritability [Unknown]
  - Madarosis [Unknown]
  - Malaise [Unknown]
  - Platelet count decreased [Unknown]
  - Product use issue [Recovered/Resolved]
  - Off label use [Recovered/Resolved]
  - Visceral oedema [Unknown]
  - Coma [Unknown]
  - Chest pain [Unknown]
  - Cardiac disorder [Unknown]
  - Visual acuity reduced [Unknown]
  - Dizziness [Unknown]
  - Cyanosis [Unknown]
  - Dyskinesia [Unknown]
  - Pyrexia [Unknown]
  - Pulse abnormal [Unknown]
  - Dyspnoea [Unknown]
  - Ascites [Unknown]
  - Insomnia [Recovered/Resolved]
  - Decreased appetite [Recovered/Resolved]
  - Dyspnoea [Unknown]
  - Diarrhoea [Recovered/Resolved]
  - Tremor [Unknown]
  - Ammonia increased [Unknown]
  - Ear pain [Unknown]
  - Haemorrhage subcutaneous [Unknown]
  - Glaucoma [Unknown]
  - Ear discomfort [Unknown]
  - Constipation [Unknown]
  - Faeces discoloured [Not Recovered/Not Resolved]
  - Contusion [Unknown]
  - Blood glucose fluctuation [Unknown]
  - Dysphonia [Unknown]
  - Urine flow decreased [Unknown]
  - Blood creatine phosphokinase decreased [Unknown]
  - Hypothermia [Not Recovered/Not Resolved]
  - Disseminated intravascular coagulation [Unknown]
  - Memory impairment [Recovered/Resolved]
  - Eczema [Recovering/Resolving]
  - Dry skin [Not Recovered/Not Resolved]
  - Arrhythmia [Unknown]
  - Oedema peripheral [Not Recovered/Not Resolved]
  - Tongue oedema [Unknown]
  - Thirst [Unknown]
  - Blood alkaline phosphatase increased [Recovered/Resolved]
  - Dehydration [Unknown]
  - Somnolence [Unknown]
  - Tongue discolouration [Unknown]
  - Pollakiuria [Unknown]
  - Dysphagia [Unknown]
  - Glomerular filtration rate decreased [Unknown]
  - Blood triglycerides abnormal [Unknown]
  - Blood trypsin increased [Unknown]
  - Immunoglobulins increased [Unknown]
  - No adverse event [Unknown]
  - Rash [Not Recovered/Not Resolved]
  - Pancreatitis [Unknown]
  - Weight fluctuation [Unknown]
  - Eye pain [Unknown]
  - Gingivitis [Unknown]
  - Nausea [Recovered/Resolved]
  - Blood bilirubin abnormal [Unknown]
  - Skin discolouration [Unknown]
  - Proteinuria [Recovered/Resolved]
  - Raynaud^s phenomenon [Unknown]
  - Alopecia [Unknown]
  - Intentional overdose [Unknown]
  - Inappropriate schedule of drug administration [Recovered/Resolved]
  - Therapeutic response unexpected [Recovered/Resolved]
  - Exophthalmos [Unknown]
  - Cardiac failure [Unknown]
  - Pruritus [Not Recovered/Not Resolved]
  - Facial asymmetry [Unknown]
  - Hypoglycaemia [Unknown]
  - Intraocular pressure increased [Unknown]
  - Chills [Unknown]
  - Pain in extremity [Unknown]
  - Face oedema [Not Recovered/Not Resolved]
  - Back pain [Unknown]
  - Euphoric mood [Unknown]
  - Sleep disorder [Unknown]
  - Liver function test abnormal [Unknown]
  - Increased appetite [Unknown]
  - Nausea [Unknown]
  - Back pain [Unknown]
  - Tinnitus [Unknown]
  - Blood cholesterol abnormal [Unknown]

NARRATIVE: CASE EVENT DATE: 2017
